FAERS Safety Report 19303210 (Version 3)
Quarter: 2021Q3

REPORT INFORMATION
  Report Type: Spontaneous
  Country: RU (occurrence: RU)
  Receive Date: 20210525
  Receipt Date: 20210727
  Transmission Date: 20211014
  Serious: Yes (Death, Life-Threatening)
  Sender: FDA-Public Use
  Company Number: RU-CELGENEUS-RUS-20210505899

PATIENT
  Age: 52 Year
  Sex: Male
  Weight: 89 kg

DRUGS (3)
  1. AZACITIDINE. [Suspect]
     Active Substance: AZACITIDINE
     Indication: ACUTE MYELOID LEUKAEMIA
     Route: 058
     Dates: start: 20201015, end: 20201015
  2. VENETOCLAX. [Suspect]
     Active Substance: VENETOCLAX
     Indication: ACUTE MYELOID LEUKAEMIA
     Dosage: 400 MILLIGRAM
     Route: 048
     Dates: start: 20201015, end: 20210312
  3. AZACITIDINE. [Suspect]
     Active Substance: AZACITIDINE
     Route: 058
     Dates: start: 20201016, end: 20210312

REACTIONS (1)
  - Death [Fatal]

NARRATIVE: CASE EVENT DATE: 20210516
